FAERS Safety Report 18589660 (Version 11)
Quarter: 2021Q4

REPORT INFORMATION
  Report Type: Report from Study
  Country: JP (occurrence: JP)
  Receive Date: 20201208
  Receipt Date: 20211230
  Transmission Date: 20220303
  Serious: Yes (Hospitalization)
  Sender: FDA-Public Use
  Company Number: NVSJ2020JP012592

PATIENT
  Age: 17 Year
  Sex: Female
  Weight: 59.5 kg

DRUGS (16)
  1. EVEROLIMUS [Suspect]
     Active Substance: EVEROLIMUS
     Indication: Osteosarcoma
     Dosage: 10 MG, QD
     Route: 048
     Dates: start: 20201109, end: 20201123
  2. EVEROLIMUS [Suspect]
     Active Substance: EVEROLIMUS
     Dosage: 5 MG, QD
     Route: 048
     Dates: start: 20201222, end: 20210118
  3. EVEROLIMUS [Suspect]
     Active Substance: EVEROLIMUS
     Dosage: 10 MG, QD
     Route: 048
     Dates: start: 20210119, end: 20210221
  4. EVEROLIMUS [Suspect]
     Active Substance: EVEROLIMUS
     Dosage: 5 MG, QD
     Route: 048
     Dates: start: 20210303, end: 20210510
  5. DEXAMETHASONE [Concomitant]
     Active Substance: DEXAMETHASONE
     Indication: Stomatitis
     Dosage: UNK
     Route: 065
     Dates: start: 20201109
  6. AZRAY [Concomitant]
     Indication: Stomatitis
     Dosage: UNK
     Route: 065
     Dates: start: 20201109
  7. URSODIOL [Concomitant]
     Active Substance: URSODIOL
     Indication: Hepatic function abnormal
     Dosage: 100 MG
     Route: 065
     Dates: start: 20201117
  8. SP [Concomitant]
     Indication: Pharyngitis
     Dosage: UNK
     Route: 065
     Dates: start: 20201117
  9. ORONINE [Concomitant]
     Indication: Product used for unknown indication
     Dosage: UNK
     Route: 065
  10. DIPHENHYDRAMINE [Concomitant]
     Active Substance: DIPHENHYDRAMINE
     Indication: Product used for unknown indication
     Dosage: UNK
     Route: 062
  11. CHONDROITIN SULFATE (BOVINE) [Concomitant]
     Active Substance: CHONDROITIN SULFATE (BOVINE)
     Indication: Product used for unknown indication
     Dosage: UNK
     Route: 062
  12. LOXOPROFEN [Concomitant]
     Active Substance: LOXOPROFEN
     Indication: Headache
     Dosage: 60 MG, PRN
     Route: 048
     Dates: start: 20201202
  13. LOXOPROFEN [Concomitant]
     Active Substance: LOXOPROFEN
     Indication: Dysmenorrhoea
  14. RINDERON VG [Concomitant]
     Active Substance: BETAMETHASONE VALERATE\GENTAMICIN SULFATE
     Indication: Product used for unknown indication
     Route: 065
  15. PETROLATUM [Concomitant]
     Active Substance: PETROLATUM
     Indication: Product used for unknown indication
     Route: 065
  16. AZUNOL [Concomitant]
     Indication: Product used for unknown indication
     Route: 065

REACTIONS (6)
  - Pneumothorax [Recovered/Resolved]
  - Pneumothorax [Recovering/Resolving]
  - Wound infection [Recovering/Resolving]
  - Pyrexia [Recovered/Resolved]
  - Immunosuppression [Unknown]
  - Wound [Unknown]

NARRATIVE: CASE EVENT DATE: 20201124
